FAERS Safety Report 9463496 (Version 1)
Quarter: 2013Q3

REPORT INFORMATION
  Report Type: Spontaneous
  Country: DE (occurrence: DE)
  Receive Date: 20130819
  Receipt Date: 20130819
  Transmission Date: 20140515
  Serious: Yes (Life-Threatening)
  Sender: FDA-Public Use
  Company Number: DE-RANBAXY-2013RR-72096

PATIENT
  Age: 36 Year
  Sex: Female

DRUGS (1)
  1. CEFUROXIM [Suspect]
     Indication: ENDOMETRITIS
     Dosage: UNK
     Route: 048
     Dates: start: 2013

REACTIONS (6)
  - Depression [Unknown]
  - Suicidal ideation [Unknown]
  - Psychotic disorder [Unknown]
  - Ear pain [Unknown]
  - Chest pain [Unknown]
  - Decreased appetite [Unknown]
